FAERS Safety Report 8185145-5 (Version None)
Quarter: 2012Q1

REPORT INFORMATION
  Report Type: 
  Country: None (occurrence: None)
  Receive Date: 20120305
  Receipt Date: 20120229
  Transmission Date: 20120608
  Serious: Yes (Disabling)
  Sender: FDA-Public Use
  Company Number: US-PFIZER INC-2012021125

PATIENT
  Sex: Male
  Weight: 72.562 kg

DRUGS (9)
  1. LIPITOR [Suspect]
     Indication: BLOOD CHOLESTEROL INCREASED
     Dosage: 20 MG, DAILY
     Route: 048
  2. ZOLOFT [Suspect]
     Indication: DEPRESSION
     Dosage: 2X/DAY (100 MG IN THE MORNING AND 50 MG IN THE EVENING)
  3. IMODIUM [Concomitant]
     Indication: GASTROINTESTINAL DISORDER
     Dosage: UNK
  4. MULTI-VITAMINS [Concomitant]
     Dosage: UNK
  5. HUMULIN R [Concomitant]
     Dosage: UNK
  6. CELEBREX [Concomitant]
     Dosage: UNK
     Route: 048
  7. ASPIRIN [Concomitant]
     Dosage: UNK
  8. ACIPHEX [Concomitant]
     Dosage: UNK
     Route: 048
  9. XANAX [Concomitant]
     Dosage: UNK
     Route: 048

REACTIONS (2)
  - COLORECTAL CANCER [None]
  - MYOCARDIAL INFARCTION [None]
